FAERS Safety Report 18467270 (Version 1)
Quarter: 2020Q4

REPORT INFORMATION
  Report Type: Spontaneous
  Country: US (occurrence: US)
  Receive Date: 20201105
  Receipt Date: 20201105
  Transmission Date: 20210114
  Serious: Yes (Hospitalization)
  Sender: FDA-Public Use
  Company Number: US-NOVOPROD-764128

PATIENT
  Age: 69 Year
  Sex: Female

DRUGS (1)
  1. NOVOLOG [Suspect]
     Active Substance: INSULIN ASPART
     Indication: PRODUCT USED FOR UNKNOWN INDICATION
     Dosage: 18 IU IN THE AM + PM + SLIDING SCALE IF BS OVER 200MG/DL
     Route: 065
     Dates: start: 2016

REACTIONS (5)
  - Stoma creation [Recovered/Resolved]
  - Hip arthroplasty [Recovered/Resolved]
  - Injection site haemorrhage [Unknown]
  - Stoma closure [Recovered/Resolved]
  - Intestinal resection [Recovered/Resolved]

NARRATIVE: CASE EVENT DATE: 20180415
